FAERS Safety Report 9112007 (Version 1)
Quarter: 2013Q1

REPORT INFORMATION
  Report Type: Spontaneous
  Country: US (occurrence: US)
  Receive Date: 20130219
  Receipt Date: 20130219
  Transmission Date: 20140127
  Serious: No
  Sender: FDA-Public Use
  Company Number: US-BRISTOL-MYERS SQUIBB COMPANY-16356412

PATIENT
  Sex: 0

DRUGS (1)
  1. ORENCIA FOR INJ [Suspect]
     Dosage: ALSO WAS ON IV ORENCIA EARLIER,HAS GONE BACK TO IV NOW.?SC INJ
     Route: 058

REACTIONS (1)
  - Drug ineffective [Unknown]
